FAERS Safety Report 8595123-X (Version None)
Quarter: 2012Q3

REPORT INFORMATION
  Report Type: 
  Country: None (occurrence: None)
  Receive Date: 20120807
  Receipt Date: 20120807
  Transmission Date: 20120928
  Serious: Yes (Other)
  Sender: FDA-Public Use
  Company Number: None

PATIENT
  Age: 63 Year
  Sex: Male
  Weight: 98.6 kg

DRUGS (10)
  1. LEFLUNOMIDE [Concomitant]
  2. ETANERCEPT [Concomitant]
  3. ABATACEPT 750 MG BRISTOL MYERS SQUIBB [Suspect]
     Dosage: 750 MG Q4 WEEKS IV
     Route: 042
     Dates: start: 20120524
  4. ABATACEPT 750 MG BRISTOL MYERS SQUIBB [Suspect]
     Dosage: 750 MG Q4 WEEKS IV
     Route: 042
     Dates: start: 20120315
  5. ABATACEPT 750 MG BRISTOL MYERS SQUIBB [Suspect]
     Dosage: 750 MG Q4 WEEKS IV
     Route: 042
     Dates: start: 20120319
  6. ABATACEPT 750 MG BRISTOL MYERS SQUIBB [Suspect]
     Dosage: 750 MG Q4 WEEKS IV
     Route: 042
     Dates: start: 20120426
  7. ABATACEPT 750 MG BRISTOL MYERS SQUIBB [Suspect]
     Dosage: 750 MG Q4 WEEKS IV
     Route: 042
     Dates: start: 20120621
  8. ABATACEPT 750 MG BRISTOL MYERS SQUIBB [Suspect]
     Dosage: 750 MG Q4 WEEKS IV
     Route: 042
     Dates: start: 20120719
  9. SULFASALAZINE [Concomitant]
  10. METHOTREXATE [Concomitant]

REACTIONS (3)
  - ACTINIC KERATOSIS [None]
  - CONDITION AGGRAVATED [None]
  - SQUAMOUS CELL CARCINOMA OF SKIN [None]
